FAERS Safety Report 6266885-1 (Version None)
Quarter: 2009Q3

REPORT INFORMATION
  Report Type: 
  Country: None (occurrence: None)
  Receive Date: 20090714
  Receipt Date: 20090709
  Transmission Date: 20100115
  Serious: Yes (Other)
  Sender: FDA-Public Use
  Company Number: US-ALLERGAN-0909659US

PATIENT
  Age: 73 Year
  Sex: Female

DRUGS (1)
  1. BOTOX [Suspect]
     Indication: BLEPHAROSPASM
     Dosage: UNK, SINGLE
     Route: 030
     Dates: start: 20090615, end: 20090615

REACTIONS (10)
  - CHILLS [None]
  - ENTROPION [None]
  - LAGOPHTHALMOS [None]
  - MUSCLE INJURY [None]
  - MUSCLE SPASMS [None]
  - NASAL DISORDER [None]
  - OCULAR HYPERAEMIA [None]
  - PHOTOPHOBIA [None]
  - SWELLING [None]
  - VISION BLURRED [None]
